FAERS Safety Report 7761162-1 (Version None)
Quarter: 2011Q3

REPORT INFORMATION
  Report Type: 
  Country: None (occurrence: None)
  Receive Date: 20110920
  Receipt Date: 20110908
  Transmission Date: 20111222
  Serious: Yes (Other)
  Sender: FDA-Public Use
  Company Number: US-ELI_LILLY_AND_COMPANY-US201109002600

PATIENT
  Sex: Male

DRUGS (11)
  1. ATENOLOL [Concomitant]
  2. ZANAFLEX [Concomitant]
  3. MORPHINE SULFATE [Concomitant]
  4. CYCLOBENZAPRINE [Concomitant]
  5. NUCYNTA [Concomitant]
  6. BUPROPION-RL [Concomitant]
  7. LISINOPRIL [Concomitant]
  8. SERTRALINE HYDROCHLORIDE [Concomitant]
  9. FORTEO [Suspect]
     Indication: SPINAL FUSION SURGERY
     Dosage: 20 UG, QD
     Route: 065
     Dates: start: 20110201, end: 20110801
  10. CHANTIX [Concomitant]
  11. LYRICA [Concomitant]

REACTIONS (6)
  - GINGIVAL INFECTION [None]
  - OSTEONECROSIS OF JAW [None]
  - LIGAMENT DISORDER [None]
  - BONE FRAGMENTATION [None]
  - GINGIVAL EROSION [None]
  - PAIN IN EXTREMITY [None]
